FAERS Safety Report 5584238-6 (Version None)
Quarter: 2008Q1

REPORT INFORMATION
  Report Type: 
  Country: None (occurrence: None)
  Receive Date: 20080108
  Receipt Date: 20080103
  Transmission Date: 20080703
  Serious: Yes (Other)
  Sender: FDA-Public Use
  Company Number: B0359618A

PATIENT
  Age: 32 Year
  Sex: Male

DRUGS (11)
  1. SEROXAT [Suspect]
     Indication: DEPRESSION
     Route: 065
     Dates: start: 19980518
  2. BACLOFEN [Concomitant]
  3. TIZANIDINE HCL [Concomitant]
  4. DANTROLENE SODIUM [Concomitant]
  5. HALOPERIDOL [Concomitant]
  6. PROPRANOLOL [Concomitant]
  7. SILDENAFIL CITRATE [Concomitant]
  8. DIAZEPAM [Concomitant]
     Dates: start: 19940518
  9. CIPRAMIL [Concomitant]
     Dates: start: 19990302
  10. GAMANIL [Concomitant]
     Dates: start: 19990618
  11. ZISPIN [Concomitant]
     Dates: start: 20010709

REACTIONS (11)
  - AGGRESSION [None]
  - AGITATION [None]
  - ERECTILE DYSFUNCTION [None]
  - HEADACHE [None]
  - NAUSEA [None]
  - NIGHTMARE [None]
  - PANIC ATTACK [None]
  - SUICIDAL IDEATION [None]
  - SUICIDE ATTEMPT [None]
  - VISION BLURRED [None]
  - WITHDRAWAL SYNDROME [None]
